FAERS Safety Report 9303379 (Version 1)
Quarter: 2013Q2

REPORT INFORMATION
  Report Type: Spontaneous
  Country: US (occurrence: US)
  Receive Date: 20130522
  Receipt Date: 20130522
  Transmission Date: 20140414
  Serious: No
  Sender: FDA-Public Use
  Company Number: US-PFIZER INC-2013153350

PATIENT
  Age: 80 Year
  Sex: Female
  Weight: 63.49 kg

DRUGS (2)
  1. AMLODIPINE BESILATE [Suspect]
     Indication: HYPERTENSION
     Dosage: UNK, 1X/DAY
     Route: 048
  2. ENTOCORT [Concomitant]
     Dosage: UNK

REACTIONS (1)
  - Joint swelling [Unknown]
